FAERS Safety Report 7473289-2 (Version None)
Quarter: 2011Q2

REPORT INFORMATION
  Report Type: 
  Country: None (occurrence: None)
  Receive Date: 20110511
  Receipt Date: 20110425
  Transmission Date: 20111010
  Serious: Yes (Death)
  Sender: FDA-Public Use
  Company Number: CA-JNJFOC-20110501339

PATIENT

DRUGS (3)
  1. ANTIRETROVIRALS [Concomitant]
     Indication: HIV INFECTION
  2. DARUNAVIR ETHANOLATE [Suspect]
     Indication: HIV INFECTION
     Route: 048
  3. RITONAVIR [Concomitant]
     Indication: HIV INFECTION

REACTIONS (1)
  - DEATH [None]
